FAERS Safety Report 17749734 (Version 2)
Quarter: 2020Q2

REPORT INFORMATION
  Report Type: Spontaneous
  Country: PT (occurrence: PT)
  Receive Date: 20200506
  Receipt Date: 20200514
  Transmission Date: 20200714
  Serious: Yes (Hospitalization, Other)
  Sender: FDA-Public Use
  Company Number: PT-SA-2020SA110749

PATIENT
  Age: 58 Year
  Sex: Male

DRUGS (7)
  1. PREDNISOLONE. [Suspect]
     Active Substance: PREDNISOLONE
     Indication: IMMUNOSUPPRESSANT DRUG THERAPY
     Dosage: UNK
  2. TACROLIMUS. [Suspect]
     Active Substance: TACROLIMUS
     Indication: IMMUNOSUPPRESSANT DRUG THERAPY
     Dosage: UNK
  3. EVEROLIMUS. [Suspect]
     Active Substance: EVEROLIMUS
     Indication: IMMUNOSUPPRESSANT DRUG THERAPY
  4. MYCOPHENOLATE MOFETIL. [Suspect]
     Active Substance: MYCOPHENOLATE MOFETIL
     Indication: IMMUNOSUPPRESSANT DRUG THERAPY
     Dosage: UNK
  5. MYCOPHENOLIC ACID. [Suspect]
     Active Substance: MYCOPHENOLIC ACID
     Indication: IMMUNOSUPPRESSANT DRUG THERAPY
     Dosage: UNK
  6. THYMOGLOBULIN [Suspect]
     Active Substance: LAPINE T-LYMPHOCYTE IMMUNE GLOBULIN
     Indication: IMMUNOSUPPRESSANT DRUG THERAPY
     Dosage: UNK
  7. RITUXIMAB. [Suspect]
     Active Substance: RITUXIMAB
     Indication: IMMUNOSUPPRESSANT DRUG THERAPY
     Dosage: 3 DF, TOTAL (CUMULATIVE DOSE TO FIRST REACTION 1500 MG)

REACTIONS (16)
  - Large intestine infection [Recovering/Resolving]
  - Large intestine polyp [Recovered/Resolved]
  - Abdominal pain [Recovering/Resolving]
  - Strongyloidiasis [Recovered/Resolved]
  - Diverticulum [Recovered/Resolved]
  - Isosporiasis [Recovering/Resolving]
  - Eosinophilia [Recovered/Resolved]
  - Fatigue [Recovering/Resolving]
  - Helicobacter infection [Recovered/Resolved]
  - Complications of transplanted kidney [Recovering/Resolving]
  - Large intestinal ulcer [Recovering/Resolving]
  - Diarrhoea [Recovering/Resolving]
  - Metabolic acidosis [Recovering/Resolving]
  - Anorectal varices [Recovered/Resolved]
  - Renal impairment [Recovering/Resolving]
  - Dehydration [Recovering/Resolving]
